FAERS Safety Report 6166367-1 (Version None)
Quarter: 2009Q2

REPORT INFORMATION
  Report Type: 
  Country: None (occurrence: None)
  Receive Date: 20090424
  Receipt Date: 20081118
  Transmission Date: 20091009
  Serious: No
  Sender: FDA-Public Use
  Company Number: A0756823A

PATIENT
  Sex: Female

DRUGS (4)
  1. DEXEDRINE [Suspect]
     Indication: NARCOLEPSY
     Dosage: 15MG THREE TIMES PER DAY
     Route: 048
  2. ZOLOFT [Concomitant]
  3. TOFRANIL [Concomitant]
  4. UNSPECIFIED MEDICATION [Concomitant]

REACTIONS (4)
  - CARDIAC DISORDER [None]
  - FEELING JITTERY [None]
  - PSYCHOMOTOR HYPERACTIVITY [None]
  - RESTLESSNESS [None]
